FAERS Safety Report 4365099-X (Version None)
Quarter: 2004Q2

REPORT INFORMATION
  Report Type: 
  Country: None (occurrence: None)
  Receive Date: 20040520
  Receipt Date: 20040416
  Transmission Date: 20050107
  Serious: Yes (Death)
  Sender: FDA-Public Use
  Company Number: 2004-DE-02493UP

PATIENT
  Age: 91 Year
  Sex: Female

DRUGS (1)
  1. MIRAPEX [Suspect]
     Indication: PARKINSON'S DISEASE
     Dosage: 0.25 MG PO
     Route: 048
     Dates: start: 20031111

REACTIONS (1)
  - CARDIO-RESPIRATORY ARREST [None]
